FAERS Safety Report 24140613 (Version 4)
Quarter: 2025Q3

REPORT INFORMATION
  Report Type: Spontaneous
  Country: US (occurrence: US)
  Receive Date: 20240726
  Receipt Date: 20250716
  Transmission Date: 20251020
  Serious: No
  Sender: SANOFI AVENTIS
  Company Number: US-SA-2024SA069622

PATIENT
  Age: 26 Year
  Sex: Male

DRUGS (2)
  1. DUPIXENT [Suspect]
     Active Substance: DUPILUMAB
     Indication: Asthma
     Route: 058
     Dates: start: 20240101, end: 20240101
  2. DUPIXENT [Suspect]
     Active Substance: DUPILUMAB
     Dosage: 300 MG, QOW
     Route: 058
     Dates: start: 20240114

REACTIONS (8)
  - Dyspnoea [Unknown]
  - Product dose omission issue [Recovered/Resolved]
  - Wheezing [Unknown]
  - Asthma [Unknown]
  - Dyspnoea exertional [Recovered/Resolved]
  - Inappropriate schedule of product administration [Unknown]
  - Injection site pain [Recovered/Resolved]
  - Product dose omission in error [Unknown]

NARRATIVE: CASE EVENT DATE: 20240101
